FAERS Safety Report 5919296-X (Version None)
Quarter: 2008Q4

REPORT INFORMATION
  Report Type: 
  Country: None (occurrence: None)
  Receive Date: 20081015
  Receipt Date: 20081006
  Transmission Date: 20090506
  Serious: Yes (Hospitalization)
  Sender: FDA-Public Use
  Company Number: PHHY2008JP23998

PATIENT
  Age: 67 Year
  Sex: Female

DRUGS (5)
  1. VOLTAREN [Suspect]
     Indication: HERPES ZOSTER
     Dosage: 75 MG/DAY
     Route: 048
     Dates: start: 20080919, end: 20081002
  2. VOLTAREN [Suspect]
     Dosage: UNK
  3. VALTREX [Suspect]
     Indication: HERPES ZOSTER
     Dosage: 3000 MG/DAY
     Route: 048
     Dates: start: 20080919, end: 20080929
  4. CYANOCOBALAMIN [Concomitant]
     Dosage: 0.15 MG UNK
     Route: 048
     Dates: start: 20080919
  5. SELBEX [Concomitant]
     Dosage: 150 MG UNK
     Route: 048
     Dates: start: 20080919

REACTIONS (3)
  - C-REACTIVE PROTEIN INCREASED [None]
  - NEUTROPENIA [None]
  - PYREXIA [None]
